FAERS Safety Report 15700674 (Version 3)
Quarter: 2019Q4

REPORT INFORMATION
  Report Type: Report from Study
  Country: DE (occurrence: DE)
  Receive Date: 20181207
  Receipt Date: 20191021
  Transmission Date: 20200122
  Serious: Yes (Hospitalization, Disabling)
  Sender: FDA-Public Use
  Company Number: DE-PURDUE PHARMA-GBR-2018-0062119

PATIENT
  Age: 68 Year
  Sex: Male
  Weight: 75 kg

DRUGS (17)
  1. ABRAXANE [Suspect]
     Active Substance: PACLITAXEL
     Dosage: 225 MG/M2, DAILY (225 MILLIGRAM/SQ. METER)
     Route: 041
     Dates: start: 20180911, end: 20180911
  2. NOVAMINSULFON [Concomitant]
     Active Substance: METAMIZOLE
     Indication: CHEST PAIN
     Dosage: 500 MG, UNK
     Route: 048
     Dates: start: 20180905
  3. IVEMEND [Concomitant]
     Active Substance: FOSAPREPITANT DIMEGLUMINE
     Indication: PROPHYLAXIS
     Dosage: 150 MG, UNK
     Route: 041
     Dates: start: 20181002
  4. TIOTROPIUM BROMIDE MONOHYDRATE [Concomitant]
     Active Substance: TIOTROPIUM BROMIDE MONOHYDRATE
     Indication: PROPHYLAXIS
     Dosage: 2.5 MG, DAILY (2.5 MILLIGRAM, DAILY)
     Route: 048
     Dates: start: 20180810
  5. ALOXI [Concomitant]
     Active Substance: PALONOSETRON HYDROCHLORIDE
     Indication: PROPHYLAXIS
     Dosage: 250 MG, UNK
     Route: 041
     Dates: start: 20181002
  6. HYDROMORPHONE HYDROCHLORIDE. [Suspect]
     Active Substance: HYDROMORPHONE HYDROCHLORIDE
     Indication: PRODUCT USED FOR UNKNOWN INDICATION
     Dosage: UNK
     Route: 065
     Dates: start: 20181001
  7. ROXITHROMYCIN [Concomitant]
     Active Substance: ROXITHROMYCIN
     Indication: CHEST PAIN
     Dosage: 300 MG, DAILY (300 MILLIGRAM)
     Route: 048
     Dates: start: 20180907, end: 20180913
  8. CIPRAMIL                           /00582602/ [Concomitant]
     Active Substance: CITALOPRAM HYDROBROMIDE
     Indication: DEPRESSION
     Dosage: 30 MG, DAILY (30 MILLIGRAM, DAILY)
     Route: 048
     Dates: start: 20180713
  9. DEXAMETHASONE. [Concomitant]
     Active Substance: DEXAMETHASONE
     Indication: PROPHYLAXIS
     Dosage: 8 MG, DAILY (8 MILLIGRAM)
     Route: 048
     Dates: start: 20181002
  10. ABRAXANE [Suspect]
     Active Substance: PACLITAXEL
     Indication: NON-SMALL CELL LUNG CANCER
     Dosage: 100 MG/M2, DAILY (100 MILLIGRAM/SQ. METER)
     Route: 041
     Dates: start: 20181002, end: 20181106
  11. BUDESONID [Concomitant]
     Active Substance: BUDESONIDE
     Indication: CHEST PAIN
     Dosage: 3 MG, DAILY (3 MILLIGRAM)
     Route: 048
     Dates: start: 20180713
  12. BISOPROLOL [Concomitant]
     Active Substance: BISOPROLOL
     Indication: HYPERTENSION
     Dosage: 5 MG, DAILY (5 MILLIGRAM)
     Route: 048
     Dates: start: 20180713
  13. LOPERAMID [Concomitant]
     Active Substance: LOPERAMIDE
     Indication: PROPHYLAXIS
     Dosage: UNK
     Route: 048
     Dates: start: 20180907
  14. BERLOSIN [Concomitant]
     Active Substance: METAMIZOLE
     Indication: PROPHYLAXIS
     Dosage: 500 MG, DAILY (500 MG, DAILY)
     Route: 048
     Dates: start: 20180912
  15. CARBOPLATIN. [Suspect]
     Active Substance: CARBOPLATIN
     Indication: NON-SMALL CELL LUNG CANCER
     Dosage: 6 MG*MIN/ML
     Route: 041
     Dates: start: 20180911
  16. NOVAMINSULFON [Concomitant]
     Active Substance: METAMIZOLE
     Route: 048
  17. TILIDIN [Concomitant]
     Active Substance: NALOXONE HYDROCHLORIDE\TILIDINE HYDROCHLORIDE
     Indication: PRODUCT USED FOR UNKNOWN INDICATION
     Dosage: UNK
     Route: 065
     Dates: start: 20181004, end: 20181101

REACTIONS (7)
  - Fatigue [Not Recovered/Not Resolved]
  - Dyspnoea [Not Recovered/Not Resolved]
  - Nausea [Not Recovered/Not Resolved]
  - Pneumonia [Recovered/Resolved]
  - Decreased appetite [Not Recovered/Not Resolved]
  - Sleep disorder [Unknown]
  - Vomiting [Recovered/Resolved]

NARRATIVE: CASE EVENT DATE: 20180917
